FAERS Safety Report 5135594-4 (Version None)
Quarter: 2006Q4

REPORT INFORMATION
  Report Type: 
  Country: None (occurrence: None)
  Receive Date: 20061026
  Receipt Date: 20060120
  Transmission Date: 20070319
  Serious: Yes (Other)
  Sender: FDA-Public Use
  Company Number: DE-ROCHE-432775

PATIENT
  Age: 63 Year
  Sex: Male
  Weight: 77 kg

DRUGS (4)
  1. CYMEVENE [Suspect]
     Route: 042
     Dates: start: 20060114, end: 20060412
  2. CYMEVENE [Suspect]
     Route: 042
     Dates: start: 20060113, end: 20060113
  3. MERONEM [Concomitant]
     Indication: PNEUMONIA
     Route: 042
     Dates: start: 20060111
  4. KLACID [Concomitant]
     Indication: PNEUMONIA
     Route: 048
     Dates: start: 20060111

REACTIONS (1)
  - DEAFNESS NEUROSENSORY [None]
